FAERS Safety Report 7264491-3 (Version None)
Quarter: 2011Q1

REPORT INFORMATION
  Report Type: 
  Country: None (occurrence: None)
  Receive Date: 20110131
  Receipt Date: 20110126
  Transmission Date: 20110831
  Serious: No
  Sender: FDA-Public Use
  Company Number: US-PFIZER INC-2011019066

PATIENT
  Sex: Female
  Weight: 110.66 kg

DRUGS (4)
  1. CHANTIX [Suspect]
     Indication: SMOKING CESSATION THERAPY
     Dosage: 0.5 MG, 1X/DAY
     Route: 048
     Dates: start: 20110101
  2. SEROQUEL [Concomitant]
     Indication: MENTAL DISORDER
     Dosage: UNK
  3. SEROQUEL [Concomitant]
     Indication: BIPOLAR DISORDER
  4. CHANTIX [Suspect]
     Dosage: 1 MG, 2X/DAY
     Dates: start: 20110122

REACTIONS (1)
  - MUSCLE SPASMS [None]
